FAERS Safety Report 6869711-2 (Version None)
Quarter: 2010Q3

REPORT INFORMATION
  Report Type: 
  Country: None (occurrence: None)
  Receive Date: 20100722
  Receipt Date: 20080814
  Transmission Date: 20110219
  Serious: No
  Sender: FDA-Public Use
  Company Number: US-PFIZER INC-2008069485

PATIENT
  Sex: Female
  Weight: 48.2 kg

DRUGS (2)
  1. CHANTIX [Suspect]
     Indication: SMOKING CESSATION THERAPY
     Dates: start: 20080801
  2. DARIFENACIN HYDROBROMIDE [Concomitant]
     Indication: HYPERTONIC BLADDER

REACTIONS (2)
  - DYSPEPSIA [None]
  - NAUSEA [None]
